FAERS Safety Report 8532938-8 (Version None)
Quarter: 2012Q3

REPORT INFORMATION
  Report Type: 
  Country: None (occurrence: None)
  Receive Date: 20120711
  Receipt Date: 20120627
  Transmission Date: 20120928
  Serious: Yes (Hospitalization, Other)
  Sender: FDA-Public Use
  Company Number: FK201201773

PATIENT
  Age: 26 Year
  Sex: Female

DRUGS (4)
  1. CEFTRIAXONE [Suspect]
     Indication: PRODUCT USED FOR UNKNOWN INDICATION
  2. AMPICILLIN [Suspect]
     Indication: PRODUCT USED FOR UNKNOWN INDICATION
  3. DOXYCYCLINE [Suspect]
     Indication: PRODUCT USED FOR UNKNOWN INDICATION
  4. ACYCLOVIR SODIUM [Suspect]
     Indication: PRODUCT USED FOR UNKNOWN INDICATION

REACTIONS (5)
  - AGITATION [None]
  - JARISCH-HERXHEIMER REACTION [None]
  - HYPOTENSION [None]
  - RASH [None]
  - DRUG HYPERSENSITIVITY [None]
